FAERS Safety Report 18998165 (Version 5)
Quarter: 2021Q3

REPORT INFORMATION
  Report Type: Report from Study
  Country: US (occurrence: US)
  Receive Date: 20210311
  Receipt Date: 20210707
  Transmission Date: 20211014
  Serious: Yes (Other)
  Sender: FDA-Public Use
  Company Number: US-PFIZER INC-2021093673

PATIENT
  Age: 61 Year
  Sex: Female

DRUGS (1)
  1. IBRANCE [Suspect]
     Active Substance: PALBOCICLIB
     Indication: BREAST CANCER FEMALE
     Dosage: 125 MG, CYCLIC (DAY 1?21 OF 28 DAY CYCLE)
     Route: 048
     Dates: start: 20201228, end: 202101

REACTIONS (20)
  - Heart rate increased [Unknown]
  - Neutropenia [Recovering/Resolving]
  - Epistaxis [Recovered/Resolved]
  - Rhinorrhoea [Recovered/Resolved]
  - Hair growth abnormal [Unknown]
  - Madarosis [Unknown]
  - Rectal discharge [Recovered/Resolved]
  - White blood cell count increased [Unknown]
  - Constipation [Recovered/Resolved]
  - Blood glucose increased [Unknown]
  - Rash [Not Recovered/Not Resolved]
  - Red blood cell count decreased [Not Recovered/Not Resolved]
  - White blood cell count decreased [Not Recovered/Not Resolved]
  - Palpitations [Recovering/Resolving]
  - Alopecia [Unknown]
  - Fatigue [Recovered/Resolved]
  - Body temperature increased [Unknown]
  - Renal function test abnormal [Unknown]
  - Tachycardia [Recovering/Resolving]
  - Red blood cell abnormality [Unknown]

NARRATIVE: CASE EVENT DATE: 202012
